FAERS Safety Report 7578172-X (Version None)
Quarter: 2011Q2

REPORT INFORMATION
  Report Type: 
  Country: None (occurrence: None)
  Receive Date: 20110628
  Receipt Date: 20110607
  Transmission Date: 20111010
  Serious: Yes (Hospitalization, Congenital Anomaly)
  Sender: FDA-Public Use
  Company Number: A0932971A

PATIENT
  Sex: Male

DRUGS (5)
  1. PAXIL [Suspect]
     Route: 064
  2. ALBUTEROL SULFATE AUTOHALER [Concomitant]
  3. INSULIN [Concomitant]
  4. PRENATE [Concomitant]
  5. LEXAPRO [Concomitant]

REACTIONS (2)
  - DRUG EXPOSURE DURING PREGNANCY [None]
  - CONGENITAL ANOMALY [None]
